FAERS Safety Report 6445049-2 (Version None)
Quarter: 2009Q4

REPORT INFORMATION
  Report Type: 
  Country: None (occurrence: None)
  Receive Date: 20091118
  Receipt Date: 20091106
  Transmission Date: 20100525
  Serious: Yes (Hospitalization)
  Sender: FDA-Public Use
  Company Number: US-PFIZER INC-2009291366

PATIENT
  Sex: Male
  Weight: 82.7 kg

DRUGS (13)
  1. PREDNISONE [Suspect]
     Indication: PROSTATE CANCER
     Dosage: 5 MG, 2X/DAY
     Route: 048
     Dates: start: 20090916
  2. BLINDED *NO SUBJECT DRUG [Suspect]
     Indication: PROSTATE CANCER
     Dosage: 37.5 MG, 1X/DAY
     Route: 048
     Dates: start: 20090916, end: 20091024
  3. BLINDED *PLACEBO [Suspect]
     Indication: PROSTATE CANCER
     Dosage: 37.5 MG, 1X/DAY
     Route: 048
     Dates: start: 20090916, end: 20091024
  4. BLINDED SUNITINIB MALATE [Suspect]
     Indication: PROSTATE CANCER
     Dosage: 37.5 MG, 1X/DAY
     Route: 048
     Dates: start: 20090916, end: 20091024
  5. METFORMIN [Concomitant]
     Indication: DIABETES MELLITUS
     Dosage: 500 MG, 2X/DAY
     Route: 048
     Dates: start: 20051201
  6. GLYBURIDE [Concomitant]
     Indication: DIABETES MELLITUS
     Dosage: 5 MG, 1X/DAY
     Route: 048
     Dates: start: 20051201
  7. ACTOS [Concomitant]
     Indication: DIABETES MELLITUS
     Dosage: 5 MG, 1X/DAY
     Route: 048
     Dates: start: 20051201
  8. LISINOPRIL [Concomitant]
     Indication: HYPERTENSION
     Dosage: 10 MG, 1X/DAY
     Route: 048
     Dates: start: 20051202
  9. LASIX [Concomitant]
     Indication: OEDEMA
     Dosage: 40 MG, 1X/DAY
     Route: 048
     Dates: start: 20090101
  10. TAMSULOSIN HYDROCHLORIDE [Concomitant]
     Indication: URINARY RETENTION
     Dosage: 0.4 MG, 1X/DAY
     Route: 048
     Dates: start: 20071010
  11. LIPITOR [Concomitant]
     Indication: HYPERCHOLESTEROLAEMIA
     Dosage: 20 MG, 1X/DAY
     Route: 048
     Dates: start: 20051201
  12. SYNTHROID [Concomitant]
     Indication: HYPOTHYROIDISM
     Dosage: 75 UG, 1X/DAY
     Route: 048
     Dates: start: 20091014
  13. MAGNESIUM OXIDE [Concomitant]
     Indication: BLOOD MAGNESIUM DECREASED
     Dosage: 400 MG, 2X/DAY
     Route: 048
     Dates: start: 20091019

REACTIONS (4)
  - BALANCE DISORDER [None]
  - FALL [None]
  - NERVOUS SYSTEM DISORDER [None]
  - SUBCUTANEOUS HAEMATOMA [None]
